FAERS Safety Report 13869817 (Version 2)
Quarter: 2017Q4

REPORT INFORMATION
  Report Type: Spontaneous
  Country: US (occurrence: US)
  Receive Date: 20170815
  Receipt Date: 20171027
  Transmission Date: 20180320
  Serious: Yes (Disabling, Other)
  Sender: FDA-Public Use
  Company Number: US-ELI_LILLY_AND_COMPANY-US201708003264

PATIENT
  Age: 67 Year
  Sex: Female

DRUGS (13)
  1. OXYCODONE [Concomitant]
     Active Substance: OXYCODONE
     Indication: SPINAL COLUMN STENOSIS
     Dosage: 30 MG, QID
  2. ZOLOFT [Concomitant]
     Active Substance: SERTRALINE HYDROCHLORIDE
     Indication: PRODUCT USED FOR UNKNOWN INDICATION
     Dosage: 100 MG, DAILY
  3. CLOPIDOGREL [Concomitant]
     Active Substance: CLOPIDOGREL BISULFATE
     Indication: PRODUCT USED FOR UNKNOWN INDICATION
     Dosage: 75 MG, DAILY
  4. HUMALOG [Suspect]
     Active Substance: INSULIN LISPRO
     Indication: PRODUCT USED FOR UNKNOWN INDICATION
     Dosage: UNK UNK, UNKNOWN
     Route: 065
     Dates: start: 20171009
  5. GABAPENTIN. [Concomitant]
     Active Substance: GABAPENTIN
     Indication: NEUROPATHY PERIPHERAL
  6. THYROXINE [Concomitant]
     Active Substance: LEVOTHYROXINE
     Indication: PRODUCT USED FOR UNKNOWN INDICATION
     Dosage: 150 MG, DAILY
  7. LOVASTATIN. [Concomitant]
     Active Substance: LOVASTATIN
     Indication: BLOOD CHOLESTEROL
     Dosage: 10 MG, DAILY
  8. HUMULIN R [Suspect]
     Active Substance: INSULIN HUMAN
     Indication: TYPE 2 DIABETES MELLITUS
     Dosage: 50 U, DAILY
     Dates: start: 2014
  9. HUMULIN R [Suspect]
     Active Substance: INSULIN HUMAN
     Dosage: 50 U, DAILY
  10. HUMULIN R [Suspect]
     Active Substance: INSULIN HUMAN
     Dosage: UNK UNK, DAILY
     Dates: end: 20171009
  11. LISINOPRIL. [Concomitant]
     Active Substance: LISINOPRIL
     Indication: BLOOD PRESSURE MEASUREMENT
     Dosage: 5 MG, DAILY
  12. LASIX [Concomitant]
     Active Substance: FUROSEMIDE
     Indication: PRODUCT USED FOR UNKNOWN INDICATION
     Dosage: 40 MG, BID
  13. CILOSTAZOL. [Concomitant]
     Active Substance: CILOSTAZOL
     Indication: PRODUCT USED FOR UNKNOWN INDICATION
     Dosage: 50 G, BID

REACTIONS (8)
  - Pain [Not Recovered/Not Resolved]
  - Wrong technique in product usage process [Unknown]
  - Malaise [Not Recovered/Not Resolved]
  - Drug ineffective [Unknown]
  - Blood glucose increased [Unknown]
  - Wrong drug administered [Unknown]
  - Fall [Unknown]
  - Blood glucose decreased [Unknown]

NARRATIVE: CASE EVENT DATE: 2016
